FAERS Safety Report 9798796 (Version 3)
Quarter: 2015Q3

REPORT INFORMATION
  Report Type: Spontaneous
  Country: US (occurrence: US)
  Receive Date: 20140106
  Receipt Date: 20150806
  Transmission Date: 20151125
  Serious: No
  Sender: FDA-Public Use
  Company Number: US-GILEAD-2010-0029988

PATIENT
  Age: 71 Year
  Sex: Male
  Weight: 76.4 kg

DRUGS (7)
  1. REMODULIN [Suspect]
     Active Substance: TREPROSTINIL
  2. LASIX [Concomitant]
     Active Substance: FUROSEMIDE
  3. ADCIRCA [Suspect]
     Active Substance: TADALAFIL
  4. DIGOXIN. [Concomitant]
     Active Substance: DIGOXIN
  5. LETAIRIS [Suspect]
     Active Substance: AMBRISENTAN
     Indication: PULMONARY ARTERIAL HYPERTENSION
     Route: 048
     Dates: start: 20090105
  6. COUMADIN [Concomitant]
     Active Substance: WARFARIN SODIUM
  7. RAMIPRIL. [Concomitant]
     Active Substance: RAMIPRIL

REACTIONS (3)
  - No therapeutic response [Unknown]
  - Fluid overload [Unknown]
  - Oedema [Unknown]
